FAERS Safety Report 9464340 (Version 1)
Quarter: 2013Q3

REPORT INFORMATION
  Report Type: Spontaneous
  Country: GB (occurrence: GB)
  Receive Date: 20130819
  Receipt Date: 20130819
  Transmission Date: 20140515
  Serious: Yes (Other)
  Sender: FDA-Public Use
  Company Number: GB-ABBOTT-13P-167-1134921-00

PATIENT
  Age: 71 Year
  Sex: Female

DRUGS (4)
  1. CYCLOSPORINE [Suspect]
     Indication: PUSTULAR PSORIASIS
  2. ACITRETIN [Concomitant]
     Indication: PUSTULAR PSORIASIS
  3. STEROIDS [Concomitant]
     Indication: COLITIS
     Route: 048
  4. MESALAZINE [Concomitant]
     Indication: COLITIS

REACTIONS (1)
  - Cytomegalovirus infection [Recovering/Resolving]
